FAERS Safety Report 7998348-7 (Version None)
Quarter: 2011Q4

REPORT INFORMATION
  Report Type: 
  Country: None (occurrence: None)
  Receive Date: 20111221
  Receipt Date: 20110804
  Transmission Date: 20120403
  Serious: No
  Sender: FDA-Public Use
  Company Number: US-GLAXOSMITHKLINE-A0939677A

PATIENT
  Age: 54 Year
  Sex: Female

DRUGS (15)
  1. NAPROXIN [Concomitant]
  2. LOVAZA [Suspect]
     Indication: ARTHRALGIA
     Dosage: 2CAP TWICE PER DAY
     Route: 048
     Dates: start: 20110801, end: 20110803
  3. NEURONTIN [Concomitant]
  4. ALBUTEROL [Concomitant]
  5. ASPIRIN [Concomitant]
  6. METOPROLOL TARTRATE [Concomitant]
  7. GLIPIZIDE [Concomitant]
  8. ASPERCREME [Concomitant]
  9. PEPCID [Concomitant]
  10. NOVOLIN R [Concomitant]
  11. IBUPROFEN (ADVIL) [Concomitant]
  12. NAPROXEN (ALEVE) [Concomitant]
  13. LANTUS [Concomitant]
  14. LISINOPRIL AND HYDROCHLOROTHIAZIDE [Concomitant]
  15. SALINE NOSE SPRAY [Concomitant]

REACTIONS (7)
  - ARTHRALGIA [None]
  - PYREXIA [None]
  - READING DISORDER [None]
  - RHINORRHOEA [None]
  - HEADACHE [None]
  - HAEMOPTYSIS [None]
  - EPISTAXIS [None]
